FAERS Safety Report 9096437 (Version 1)
Quarter: 2013Q1

REPORT INFORMATION
  Report Type: Spontaneous
  Country: GB (occurrence: None)
  Receive Date: 20130124
  Receipt Date: 20130124
  Transmission Date: 20140127
  Serious: Yes (Other)
  Sender: FDA-Public Use
  Company Number: GER/UKI/13/0027401

PATIENT
  Age: 84 Year
  Sex: Female
  Weight: 58 kg

DRUGS (7)
  1. OMEPRAZOLE (OMEPRAZOLE) [Suspect]
     Indication: PRODUCT USED FOR UNKNOWN INDICATION
     Dates: start: 20120627
  2. ASPIRIN (ACETYLSALICYCLIC ACID) [Concomitant]
  3. BENDROFLUMETHIAZIDE (BENDROFLUMETHIAZIDE) [Concomitant]
  4. DIAZEPAM (DIAZEPAM) [Concomitant]
  5. FLUCLOXACILLIN (FLUCLOXACILLIN) [Concomitant]
  6. PROPANOLOL (PROPRANOLOL) [Concomitant]
  7. TRIMETHOPRIM (TRIMETHOPRIM) [Concomitant]

REACTIONS (1)
  - Swollen tongue [None]
